FAERS Safety Report 16487187 (Version 1)
Quarter: 2019Q3

REPORT INFORMATION
  Report Type: Spontaneous
  Country: US (occurrence: US)
  Receive Date: 20190626
  Receipt Date: 20190626
  Transmission Date: 20191004
  Serious: Yes (Other)
  Sender: FDA-Public Use
  Company Number: None

PATIENT
  Age: 50 Year
  Sex: Female
  Weight: 72.4 kg

DRUGS (2)
  1. LANADELUMAB [Suspect]
     Active Substance: LANADELUMAB
     Indication: HEREDITARY ANGIOEDEMA
     Dosage: ?          OTHER FREQUENCY:EVERY 2 WEEKS;?
     Route: 058
     Dates: start: 20190605, end: 20190619
  2. ICATIBANT [Concomitant]
     Active Substance: ICATIBANT ACETATE
     Dates: start: 20171117, end: 20190626

REACTIONS (4)
  - Chest pain [None]
  - Palpitations [None]
  - Headache [None]
  - Pain [None]

NARRATIVE: CASE EVENT DATE: 20190619
